FAERS Safety Report 5707269-1 (Version None)
Quarter: 2008Q2

REPORT INFORMATION
  Report Type: 
  Country: None (occurrence: None)
  Receive Date: 20080416
  Receipt Date: 20080404
  Transmission Date: 20081010
  Serious: Yes (Hospitalization)
  Sender: FDA-Public Use
  Company Number: US-WYE-H03439108

PATIENT
  Age: 74 Year
  Sex: Male
  Weight: 89 kg

DRUGS (16)
  1. ADVIL [Suspect]
     Indication: PAIN
     Dosage: ^UP TO 9 TABLETS PER DAY^
     Route: 048
  2. CRESTOR [Concomitant]
     Indication: DRUG USE FOR UNKNOWN INDICATION
     Dosage: UNKNOWN
     Route: 065
  3. ATACAND [Concomitant]
     Indication: DRUG USE FOR UNKNOWN INDICATION
     Dosage: UNKNOWN
     Route: 065
  4. TENORMIN [Concomitant]
     Indication: DRUG USE FOR UNKNOWN INDICATION
     Dosage: UNKNOWN
     Route: 065
  5. ISOSORBIDE MONONITRATE [Concomitant]
     Indication: DRUG USE FOR UNKNOWN INDICATION
     Dosage: UNKNOWN
     Route: 065
  6. NITROGLYCERIN ^PHARMACIA-UPJOHN^ [Concomitant]
     Indication: DRUG USE FOR UNKNOWN INDICATION
     Dosage: UNKNOWN
     Route: 065
  7. ACETYLSALICYLIC ACID SRT [Concomitant]
     Indication: DRUG USE FOR UNKNOWN INDICATION
     Dosage: UNKNOWN
     Route: 065
  8. PAROXETINE HCL [Concomitant]
     Indication: DRUG USE FOR UNKNOWN INDICATION
     Dosage: UNKNOWN
     Route: 065
  9. FISH OIL, HYDROGENATED [Concomitant]
     Indication: DRUG USE FOR UNKNOWN INDICATION
     Dosage: UNKNOWN
     Route: 065
  10. FLAXSEED [Concomitant]
     Indication: DRUG USE FOR UNKNOWN INDICATION
     Dosage: UNKNOWN
     Route: 065
  11. CLOBETASOL PROPIONATE [Concomitant]
     Indication: DRUG USE FOR UNKNOWN INDICATION
     Dosage: UNKNOWN
     Route: 061
  12. COENZYME Q10 [Concomitant]
     Indication: DRUG USE FOR UNKNOWN INDICATION
     Dosage: UNKNOWN
     Route: 065
  13. PULMICORT [Concomitant]
     Indication: DRUG USE FOR UNKNOWN INDICATION
     Dosage: UNKNOWN
     Route: 065
  14. SUTENT [Suspect]
     Indication: RENAL CELL CARCINOMA STAGE III
     Route: 048
     Dates: start: 20071018, end: 20071112
  15. IMODIUM [Concomitant]
     Indication: DIARRHOEA
     Dosage: UNKNOWN
     Route: 065
  16. NEXAVAR [Suspect]
     Indication: RENAL CELL CARCINOMA STAGE III
     Route: 048
     Dates: start: 20071018, end: 20071112

REACTIONS (4)
  - HERPES SIMPLEX [None]
  - ORAL HERPES [None]
  - OVERDOSE [None]
  - RENAL FAILURE [None]
